FAERS Safety Report 11635346 (Version 1)
Quarter: 2015Q4

REPORT INFORMATION
  Report Type: Spontaneous
  Country: US (occurrence: US)
  Receive Date: 20151016
  Receipt Date: 20151016
  Transmission Date: 20160304
  Serious: Yes (Hospitalization)
  Sender: FDA-Public Use
  Company Number: US-ROCHE-1642345

PATIENT
  Age: 70 Year
  Sex: Female

DRUGS (1)
  1. XELODA [Suspect]
     Active Substance: CAPECITABINE
     Indication: NEOPLASM MALIGNANT
     Dosage: FOR 14 DAYS THEN 7 DAYS OFF
     Route: 048
     Dates: start: 20150824

REACTIONS (6)
  - Thrombosis [Recovered/Resolved with Sequelae]
  - Renal failure [Recovered/Resolved with Sequelae]
  - Hepatic failure [Recovered/Resolved with Sequelae]
  - Gastrointestinal ulcer [Recovered/Resolved with Sequelae]
  - Eating disorder [Unknown]
  - Throat irritation [Recovered/Resolved with Sequelae]

NARRATIVE: CASE EVENT DATE: 20150927
